FAERS Safety Report 9289628 (Version 3)
Quarter: 2014Q2

REPORT INFORMATION
  Report Type: Report from Study
  Country: GB (occurrence: GB)
  Receive Date: 20130515
  Receipt Date: 20140402
  Transmission Date: 20141212
  Serious: Yes (Hospitalization)
  Sender: FDA-Public Use
  Company Number: GB-009507513-1305GBR006789

PATIENT
  Age: 59 Year
  Sex: Female

DRUGS (2)
  1. VORINOSTAT [Suspect]
     Indication: PLASMA CELL MYELOMA
     Dosage: 300 MG, DAYS 1-7 AND 15-21
     Route: 048
     Dates: start: 20121214
  2. LENALIDOMIDE [Suspect]
     Indication: PLASMA CELL MYELOMA
     Dosage: 10 MG, DAYS 1-21
     Route: 048
     Dates: start: 20111206

REACTIONS (1)
  - Lower respiratory tract infection [Recovered/Resolved]
